FAERS Safety Report 17598960 (Version 2)
Quarter: 2020Q2

REPORT INFORMATION
  Report Type: Spontaneous
  Country: CN (occurrence: CN)
  Receive Date: 20200330
  Receipt Date: 20200403
  Transmission Date: 20200713
  Serious: Yes (Hospitalization, Other)
  Sender: FDA-Public Use
  Company Number: CN-PFIZER INC-2020129862

PATIENT
  Age: 67 Year
  Sex: Male
  Weight: 55 kg

DRUGS (6)
  1. MEGLUMINE ADENOSINE CYCLOPHOSPHATE [Concomitant]
     Active Substance: ADENOSINE CYCLIC PHOSPHATE MEGLUMINE
     Indication: CHEST DISCOMFORT
     Dosage: 180 MG, 1X/DAY
     Route: 041
     Dates: start: 20200304, end: 20200315
  2. VORICONAZOLE. [Suspect]
     Active Substance: VORICONAZOLE
     Dosage: 200 MG, 2X/DAY
     Route: 041
     Dates: start: 20200311, end: 20200316
  3. PAN LI SU [Concomitant]
     Active Substance: PANTOPRAZOLE SODIUM
     Indication: GASTRIC DISORDER
     Dosage: 40 MG, 1X/DAY
     Route: 048
     Dates: start: 20200310, end: 20200323
  4. HYDROXYCARBAMIDE [Concomitant]
     Active Substance: HYDROXYUREA
     Indication: ACUTE LEUKAEMIA
     Dosage: 1 G, 2X/DAY
     Route: 048
     Dates: start: 20200304, end: 20200317
  5. VORICONAZOLE. [Suspect]
     Active Substance: VORICONAZOLE
     Indication: FUNGAL INFECTION
     Dosage: 400 MG, 2X/DAY
     Route: 041
     Dates: start: 20200310, end: 20200310
  6. MEROPENEM. [Concomitant]
     Active Substance: MEROPENEM
     Indication: PNEUMONIA
     Dosage: 0.5 G, 4X/DAY
     Route: 041
     Dates: start: 20200310, end: 20200313

REACTIONS (8)
  - Retinal haemorrhage [Not Recovered/Not Resolved]
  - Condition aggravated [Unknown]
  - Vision blurred [Not Recovered/Not Resolved]
  - Acute leukaemia [Unknown]
  - Macular oedema [Not Recovered/Not Resolved]
  - Cataract [Not Recovered/Not Resolved]
  - Pneumonia [Unknown]
  - Vitreous opacities [Not Recovered/Not Resolved]

NARRATIVE: CASE EVENT DATE: 20200311
